FAERS Safety Report 9327540 (Version 1)
Quarter: 2013Q2

REPORT INFORMATION
  Report Type: Spontaneous
  Country: US (occurrence: US)
  Receive Date: 20130604
  Receipt Date: 20130604
  Transmission Date: 20140414
  Serious: No
  Sender: FDA-Public Use
  Company Number: US-AMGEN-USASP2013031277

PATIENT
  Age: 57 Year
  Sex: Female
  Weight: 74.38 kg

DRUGS (4)
  1. ENBREL [Suspect]
     Indication: RHEUMATOID ARTHRITIS
     Dosage: 50 MG, QWK
     Route: 058
  2. SYNTHROID [Suspect]
     Indication: HYPOTHYROIDISM
     Dosage: 75 MG, QD
     Route: 048
  3. MTX                                /00113801/ [Concomitant]
     Indication: RHEUMATOID ARTHRITIS
     Dosage: 15 G, QWK
     Route: 048
  4. MOBIC [Concomitant]
     Dosage: 10 G, QD
     Route: 048

REACTIONS (2)
  - Bone loss [Not Recovered/Not Resolved]
  - Osteopenia [Unknown]
